FAERS Safety Report 18185458 (Version 1)
Quarter: 2020Q3

REPORT INFORMATION
  Report Type: Spontaneous
  Country: US (occurrence: US)
  Receive Date: 20200821
  Receipt Date: 20200821
  Transmission Date: 20201103
  Serious: Yes (Hospitalization)
  Sender: FDA-Public Use
  Company Number: None

PATIENT
  Age: 40 Year
  Sex: Male

DRUGS (1)
  1. PEMAZYRE [Suspect]
     Active Substance: PEMIGATINIB
     Indication: CHOLANGIOCARCINOMA
     Route: 048
     Dates: start: 20200806

REACTIONS (5)
  - Vomiting [None]
  - Rash [None]
  - Oral mucosal eruption [None]
  - Hypoaesthesia [None]
  - Nausea [None]

NARRATIVE: CASE EVENT DATE: 20200820
